FAERS Safety Report 4384419-3 (Version None)
Quarter: 2004Q2

REPORT INFORMATION
  Report Type: 
  Country: None (occurrence: None)
  Receive Date: 20040624
  Receipt Date: 20040611
  Transmission Date: 20050107
  Serious: Yes (Life-Threatening, Disabling)
  Sender: FDA-Public Use
  Company Number: PHHC-011

PATIENT
  Age: 68 Year
  Sex: Male

DRUGS (7)
  1. HYCAMTIN [Suspect]
     Dosage: 2.226MG PER DAY
     Route: 042
     Dates: start: 20040510, end: 20040514
  2. CISPLATIN [Suspect]
     Dosage: 95.4MG PER DAY
     Route: 042
     Dates: start: 20040514
  3. NARTOGRASTIM [Concomitant]
     Indication: NEUTROPENIA
     Route: 065
     Dates: start: 20040515, end: 20040527
  4. AMLODIPINE [Concomitant]
     Indication: HYPERTENSION
     Route: 048
  5. ATENOLOL [Concomitant]
     Indication: HYPERTENSION
     Route: 048
  6. TRICHLORMETHIAZIDE [Concomitant]
     Indication: HYPERTENSION
     Route: 048
  7. BENZBROMARONE [Concomitant]
     Indication: HYPERTENSION
     Route: 048

REACTIONS (8)
  - CEREBRAL INFARCTION [None]
  - DIFFICULTY IN WALKING [None]
  - DYSSTASIA [None]
  - HEMIPLEGIA [None]
  - LEUKOPENIA [None]
  - NEUTROPHIL COUNT DECREASED [None]
  - PAIN IN EXTREMITY [None]
  - THROMBOCYTOPENIA [None]
